FAERS Safety Report 15901519 (Version 2)
Quarter: 2019Q1

REPORT INFORMATION
  Report Type: Spontaneous
  Country: JP (occurrence: JP)
  Receive Date: 20190201
  Receipt Date: 20190306
  Transmission Date: 20190417
  Serious: Yes (Hospitalization)
  Sender: FDA-Public Use
  Company Number: JP-ASTRAZENECA-2018SF61799

PATIENT
  Age: 73 Year
  Sex: Female
  Weight: 42 kg

DRUGS (8)
  1. MAGMITT [Concomitant]
     Active Substance: MAGNESIUM OXIDE
     Route: 048
  2. EDIROL [Concomitant]
     Active Substance: ELDECALCITOL
     Route: 048
  3. ASPARA-CA [Concomitant]
     Active Substance: CALCIUM ASPARTATE
     Route: 048
  4. TAGRISSO [Suspect]
     Active Substance: OSIMERTINIB
     Indication: NON-SMALL CELL LUNG CANCER
     Route: 048
     Dates: start: 20181114, end: 20181124
  5. TAGRISSO [Suspect]
     Active Substance: OSIMERTINIB
     Indication: NON-SMALL CELL LUNG CANCER
     Route: 048
     Dates: start: 20181128
  6. MUCOSOLATE [Concomitant]
     Active Substance: AMBROXOL HYDROCHLORIDE
     Route: 048
  7. MONTELUKAST [Concomitant]
     Active Substance: MONTELUKAST SODIUM
     Route: 048
  8. BELSOMRA [Concomitant]
     Active Substance: SUVOREXANT
     Route: 048

REACTIONS (2)
  - Dermatitis acneiform [Recovering/Resolving]
  - Oral dysaesthesia [Recovering/Resolving]

NARRATIVE: CASE EVENT DATE: 20181124
